FAERS Safety Report 18655499 (Version 7)
Quarter: 2023Q4

REPORT INFORMATION
  Report Type: Report from Study
  Country: JP (occurrence: JP)
  Receive Date: 20201223
  Receipt Date: 20231213
  Transmission Date: 20240110
  Serious: Yes (Hospitalization, Other)
  Sender: FDA-Public Use
  Company Number: JP-ONO-2020JP025144

PATIENT
  Age: 57 Year
  Sex: Female
  Weight: 73.4 kg

DRUGS (8)
  1. BRAFTOVI [Suspect]
     Active Substance: ENCORAFENIB
     Indication: Malignant melanoma
     Dosage: 450 MG, EVERYDAY
     Route: 048
     Dates: start: 20200611, end: 20200622
  2. BRAFTOVI [Suspect]
     Active Substance: ENCORAFENIB
     Dosage: UNK
     Route: 048
     Dates: start: 202103
  3. MEKTOVI [Suspect]
     Active Substance: BINIMETINIB
     Indication: Malignant melanoma
     Dosage: 90 MG, EVERYDAY
     Route: 048
     Dates: start: 20200611, end: 20200622
  4. MEKTOVI [Suspect]
     Active Substance: BINIMETINIB
     Dosage: UNK
     Route: 048
     Dates: start: 202103
  5. OPDIVO [Suspect]
     Active Substance: NIVOLUMAB
     Indication: Malignant melanoma
     Dosage: UNK
     Route: 041
     Dates: end: 20200602
  6. OPDIVO [Suspect]
     Active Substance: NIVOLUMAB
     Dosage: UNK
     Route: 041
  7. PIPERACILLIN SODIUM\TAZOBACTAM SODIUM [Concomitant]
     Active Substance: PIPERACILLIN SODIUM\TAZOBACTAM SODIUM
     Indication: Atelectasis
     Dosage: UNK
     Route: 065
     Dates: start: 20200611
  8. PIPERACILLIN SODIUM\TAZOBACTAM SODIUM [Concomitant]
     Active Substance: PIPERACILLIN SODIUM\TAZOBACTAM SODIUM
     Indication: Pneumonia

REACTIONS (6)
  - Altered state of consciousness [Recovered/Resolved]
  - Pneumonia [Recovering/Resolving]
  - Pyrexia [Recovered/Resolved]
  - Multiple organ dysfunction syndrome [Recovering/Resolving]
  - Altered state of consciousness [Unknown]
  - Pyrexia [Unknown]

NARRATIVE: CASE EVENT DATE: 20200601
